FAERS Safety Report 6626241-0 (Version None)
Quarter: 2010Q1

REPORT INFORMATION
  Report Type: 
  Country: None (occurrence: None)
  Receive Date: 20100310
  Receipt Date: 20100305
  Transmission Date: 20100710
  Serious: Yes (Hospitalization)
  Sender: FDA-Public Use
  Company Number: GB-WYE-G05506410

PATIENT
  Sex: Male
  Weight: 82 kg

DRUGS (9)
  1. GEMTUZUMAB OZOGAMICIN [Suspect]
     Indication: ACUTE MYELOID LEUKAEMIA
     Dates: start: 20100122, end: 20100122
  2. ARA-C [Concomitant]
     Indication: ACUTE MYELOID LEUKAEMIA
     Dosage: 10, UNITS AND FREQUENCY UNKNOWN
     Dates: start: 20100122, end: 20100203
  3. OMEPRAZOLE [Suspect]
     Dosage: 20 MG, FREQUENCY UNKNOWN
     Route: 048
     Dates: start: 20100129, end: 20100203
  4. GENTAMICIN [Concomitant]
     Indication: NEUTROPENIC SEPSIS
     Dates: start: 20100130, end: 20100203
  5. FLUCONAZOLE [Suspect]
     Dosage: 50 MG, FREQUENCY UNKNOWN
     Dates: start: 20100115, end: 20100121
  6. FLUCONAZOLE [Suspect]
     Dates: start: 20100131, end: 20100203
  7. ALLOPURINOL [Suspect]
     Dates: start: 20100119, end: 20100203
  8. DAUNORUBICIN [Concomitant]
     Indication: ACUTE MYELOID LEUKAEMIA
     Dosage: 3, UNITS AND FREQUENCY UNKNOWN
     Dates: start: 20100122, end: 20100203
  9. TAZOCIN [Suspect]
     Indication: NEUTROPENIC SEPSIS
     Dates: start: 20100130, end: 20100203

REACTIONS (2)
  - ASPARTATE AMINOTRANSFERASE INCREASED [None]
  - LOBAR PNEUMONIA [None]
